FAERS Safety Report 11746992 (Version 1)
Quarter: 2015Q4

REPORT INFORMATION
  Report Type: Spontaneous
  Country: AU (occurrence: AU)
  Receive Date: 20151117
  Receipt Date: 20151117
  Transmission Date: 20160304
  Serious: Yes (Other)
  Sender: FDA-Public Use
  Company Number: AU-PFIZER INC-2015388442

PATIENT

DRUGS (2)
  1. TRAMADOL HCL [Interacting]
     Active Substance: TRAMADOL HYDROCHLORIDE
     Dosage: UNK
  2. LYRICA [Suspect]
     Active Substance: PREGABALIN

REACTIONS (3)
  - Hypokalaemia [Unknown]
  - Drug interaction [Unknown]
  - Serotonin syndrome [Unknown]
